FAERS Safety Report 8413267-X (Version None)
Quarter: 2012Q2

REPORT INFORMATION
  Report Type: 
  Country: None (occurrence: None)
  Receive Date: 20120605
  Receipt Date: 20120525
  Transmission Date: 20120825
  Serious: Yes (Other)
  Sender: FDA-Public Use
  Company Number: US-PFIZER INC-2012127293

PATIENT
  Sex: Female
  Weight: 88.4 kg

DRUGS (6)
  1. LORTAB [Concomitant]
     Indication: NECK PAIN
     Dosage: 10/500 MG, AS NEEDED
     Dates: start: 20110101
  2. LORTAB [Concomitant]
     Indication: BACK PAIN
  3. LYRICA [Suspect]
     Indication: FIBROMYALGIA
     Dosage: 100 MG, 2X/DAY
     Dates: start: 20110826, end: 20120101
  4. LYRICA [Suspect]
     Indication: NEURALGIA
     Dosage: 150 MG, 2X/DAY
     Dates: start: 20120101, end: 20120501
  5. CYMBALTA [Concomitant]
     Indication: DEPRESSION
     Dosage: 120 MG, DAILY IN THE MORNING
  6. SOMA [Concomitant]
     Indication: MUSCLE SPASMS
     Dosage: 350 MG, AS NEEDED

REACTIONS (5)
  - PAIN [None]
  - WEIGHT DECREASED [None]
  - CONCUSSION [None]
  - DRUG INEFFECTIVE [None]
  - ROAD TRAFFIC ACCIDENT [None]
